FAERS Safety Report 7753431-6 (Version None)
Quarter: 2011Q3

REPORT INFORMATION
  Report Type: 
  Country: None (occurrence: None)
  Receive Date: 20110913
  Receipt Date: 20110829
  Transmission Date: 20111222
  Serious: Yes (Other)
  Sender: FDA-Public Use
  Company Number: 1000023560

PATIENT
  Age: 79 Year
  Sex: Male
  Weight: 65 kg

DRUGS (9)
  1. PANTOPRAZOLE (PANTOPRAZOLE) (PANTOPRAZOLE) [Concomitant]
  2. ROFLUMILAST (ROFLUMILAST) (500 MICROGRAM, TABLETS) [Suspect]
     Indication: CHRONIC OBSTRUCTIVE PULMONARY DISEASE
     Dosage: 500 MCG (500 MCG, 1 IN 1 D), ORAL
     Route: 048
     Dates: start: 20110401, end: 20110805
  3. TRANKIMAZIN (ALPRAZOLAM) (ALPRAZOLAM) [Concomitant]
  4. PLUSVENT (FLUTICASONE, SALMETEROL) (FLUTICASONE, SALMETEROL) [Concomitant]
  5. ANTABUS (DISULFIRAM) (DISULFIRAM) [Concomitant]
  6. CIPRALEX (ESCITALOPRAM OXALATE) (ESCITALOPRAM OXALATE) [Concomitant]
  7. STILNOX (ZOLPIDEM TARTRATE) ZOLPIDEM TARTRATE) [Concomitant]
  8. SPRIVA (TIOTROPIUM BROMIDE) (TIOTROPIUM BROMIDE) [Concomitant]
  9. VENTOLIN (SALBUTAMOL) (SALBUTAMOL) [Concomitant]

REACTIONS (3)
  - WEIGHT DECREASED [None]
  - NEOPLASM MALIGNANT [None]
  - COLONIC POLYP [None]
